FAERS Safety Report 18622364 (Version 1)
Quarter: 2020Q4

REPORT INFORMATION
  Report Type: Spontaneous
  Country: US (occurrence: US)
  Receive Date: 20201215
  Receipt Date: 20201215
  Transmission Date: 20210114
  Serious: No
  Sender: FDA-Public Use
  Company Number: None

PATIENT
  Age: 49 Year
  Sex: Female
  Weight: 63.45 kg

DRUGS (23)
  1. APREPITANT. [Concomitant]
     Active Substance: APREPITANT
  2. PROMETHAZINE HCL [Concomitant]
     Active Substance: PROMETHAZINE HYDROCHLORIDE
  3. DIPHENHYDRAMINE. [Suspect]
     Active Substance: DIPHENHYDRAMINE
     Indication: LUNG NEOPLASM MALIGNANT
     Dosage: ?          OTHER FREQUENCY:EVERY 21 DAYS;?
     Route: 042
     Dates: start: 20201027
  4. HERZUMA [Suspect]
     Active Substance: TRASTUZUMAB-PKRB
     Indication: LUNG NEOPLASM MALIGNANT
     Dosage: ?          OTHER FREQUENCY:EVERY 3 WEEKS;?
     Route: 042
     Dates: start: 20201027
  5. AMITIZA [Concomitant]
     Active Substance: LUBIPROSTONE
  6. AMLODIPINE BESYLATE. [Concomitant]
     Active Substance: AMLODIPINE BESYLATE
  7. ATENOLOL. [Concomitant]
     Active Substance: ATENOLOL
  8. MOUTHWASH-AF [Concomitant]
  9. FAMCICLOVIR. [Concomitant]
     Active Substance: FAMCICLOVIR
  10. DEXILANT [Concomitant]
     Active Substance: DEXLANSOPRAZOLE
  11. ROSUVASTATIN CALCIUM. [Concomitant]
     Active Substance: ROSUVASTATIN CALCIUM
  12. BUPROPION HCL ER (XL) [Concomitant]
     Active Substance: BUPROPION HYDROCHLORIDE
  13. DEXTROAMPHETAMINE SULFATE. [Concomitant]
     Active Substance: DEXTROAMPHETAMINE SULFATE
  14. LOSARTAN POTASSIUM. [Concomitant]
     Active Substance: LOSARTAN POTASSIUM
  15. HYDROCORTISONE. [Concomitant]
     Active Substance: HYDROCORTISONE
  16. OXCARBAZEPINE. [Concomitant]
     Active Substance: OXCARBAZEPINE
  17. ADVAIR DISKUS [Concomitant]
     Active Substance: FLUTICASONE PROPIONATE\SALMETEROL XINAFOATE
  18. OXYCONTIN [Concomitant]
     Active Substance: OXYCODONE HYDROCHLORIDE
  19. ISOSORBIDE MONONITRATE ER [Concomitant]
     Active Substance: ISOSORBIDE MONONITRATE
  20. FENTANYL CITRATE (PF) [Concomitant]
  21. TRAZODONE HYDROCHLORIDE. [Concomitant]
     Active Substance: TRAZODONE HYDROCHLORIDE
  22. OXYCODONE HYDROCHLORIDE. [Concomitant]
     Active Substance: OXYCODONE HYDROCHLORIDE
  23. LEVOTHYROXINE SODIUM. [Concomitant]
     Active Substance: LEVOTHYROXINE SODIUM

REACTIONS (1)
  - Hospice care [None]

NARRATIVE: CASE EVENT DATE: 20201215
